FAERS Safety Report 17134233 (Version 1)
Quarter: 2019Q4

REPORT INFORMATION
  Report Type: Report from Study
  Country: ES (occurrence: ES)
  Receive Date: 20191210
  Receipt Date: 20191210
  Transmission Date: 20200122
  Serious: Yes (Other)
  Sender: FDA-Public Use
  Company Number: ES-TEVA-2019-ES-1148239

PATIENT
  Age: 87 Year
  Sex: Male

DRUGS (9)
  1. GABAPENTINA 300 MG C?PSULA [Suspect]
     Active Substance: GABAPENTIN
     Indication: DEMENTIA ALZHEIMER^S TYPE
     Dosage: 1-0-1 , 300 MG 12 HOURS
     Route: 048
     Dates: start: 201802, end: 20180323
  2. OMEPRAZOL (2141A) [Concomitant]
     Active Substance: OMEPRAZOLE
  3. SINTROM 4 MG COMPRIMIDOS [Concomitant]
     Active Substance: ACENOCOUMAROL
  4. SERTRALINA 50 MG COMPRIMIDO [Concomitant]
  5. DUODART [Concomitant]
     Active Substance: DUTASTERIDE\TAMSULOSIN
  6. DIGOXINA (770A) [Concomitant]
     Active Substance: DIGOXIN
  7. SEGURIL [Concomitant]
     Active Substance: FUROSEMIDE
  8. DISTRANEURINE [Concomitant]
     Active Substance: CLOMETHIAZOLE
  9. RISPERIDONA 0,5 MG COMPRIMIDO [Suspect]
     Active Substance: RISPERIDONE
     Indication: DEMENTIA ALZHEIMER^S TYPE
     Dosage: 1-0-2 , 1.5 MG 1 DAYS
     Route: 048
     Dates: start: 201802, end: 20180323

REACTIONS (1)
  - Extrapyramidal disorder [Recovering/Resolving]

NARRATIVE: CASE EVENT DATE: 201803
